FAERS Safety Report 6522182-8 (Version None)
Quarter: 2009Q4

REPORT INFORMATION
  Report Type: 
  Country: None (occurrence: None)
  Receive Date: 20091229
  Receipt Date: 20091229
  Transmission Date: 20100525
  Serious: Yes (Life-Threatening, Hospitalization)
  Sender: FDA-Public Use
  Company Number: None

PATIENT
  Age: 57 Year
  Sex: Female
  Weight: 72.5 kg

DRUGS (11)
  1. WARFARIN [Suspect]
     Dosage: 5-10MG ONCE DAILY PO
     Route: 048
     Dates: start: 20090903, end: 20090930
  2. OMEPRAZOLE [Concomitant]
  3. COGENTIN [Concomitant]
  4. FLUPHENAZINE [Concomitant]
  5. DOXEPIN HCL [Concomitant]
  6. LOTREL [Concomitant]
  7. GLIPIZIDE [Concomitant]
  8. REGLAN [Concomitant]
  9. FLAGYL [Concomitant]
  10. ALA-MG [Concomitant]
  11. TETRACYCLINE [Concomitant]

REACTIONS (3)
  - DRUG DISPENSING ERROR [None]
  - INTERNATIONAL NORMALISED RATIO INCREASED [None]
  - PROTHROMBIN TIME PROLONGED [None]
